FAERS Safety Report 15543081 (Version 1)
Quarter: 2018Q4

REPORT INFORMATION
  Report Type: Spontaneous
  Country: ES (occurrence: ES)
  Receive Date: 20181023
  Receipt Date: 20181023
  Transmission Date: 20190205
  Serious: Yes (Other)
  Sender: FDA-Public Use
  Company Number: ES-PFIZER INC-2018427772

PATIENT
  Age: 71 Year
  Sex: Male

DRUGS (4)
  1. LEVETIRACETAM. [Concomitant]
     Active Substance: LEVETIRACETAM
     Indication: ENDOTRACHEAL INTUBATION
     Dosage: 5000 MG, SINGLE
     Route: 042
     Dates: start: 20180918, end: 20180918
  2. CLONAZEPAM. [Suspect]
     Active Substance: CLONAZEPAM
     Indication: ENDOTRACHEAL INTUBATION
     Dosage: 2.5 MG, SINGLE
     Route: 042
     Dates: start: 20180918, end: 20180918
  3. PROPOFOL. [Suspect]
     Active Substance: PROPOFOL
     Indication: SEDATION
     Dosage: 126 MG, SINGLE
     Route: 042
     Dates: start: 20180918, end: 20180918
  4. VALPROIC ACID. [Suspect]
     Active Substance: VALPROIC ACID
     Indication: STATUS EPILEPTICUS
     Dosage: UNK
     Route: 042
     Dates: start: 20180918, end: 20180919

REACTIONS (1)
  - Atrioventricular block [Recovered/Resolved]

NARRATIVE: CASE EVENT DATE: 20180918
